FAERS Safety Report 6256305-5 (Version None)
Quarter: 2009Q2

REPORT INFORMATION
  Report Type: 
  Country: None (occurrence: None)
  Receive Date: 20090630
  Receipt Date: 20090630
  Transmission Date: 20091009
  Serious: Yes (Life-Threatening, Hospitalization, Other)
  Sender: FDA-Public Use
  Company Number: None

PATIENT
  Age: 39 Year
  Sex: Male
  Weight: 79.3795 kg

DRUGS (3)
  1. TRAMADOL HCL [Suspect]
     Indication: PAIN
     Dosage: 2 PILLS 3 TIMES A DAY AS NEEDE PO
     Route: 048
     Dates: start: 20080529, end: 20090529
  2. BENADRYL [Suspect]
     Indication: PRURITUS
  3. TYLENOL (CAPLET) [Suspect]

REACTIONS (8)
  - ANXIETY [None]
  - ASPIRATION [None]
  - CAUSTIC INJURY [None]
  - COMA [None]
  - LUNG DISORDER [None]
  - PNEUMONIA [None]
  - PRURITUS [None]
  - SINUS ARRHYTHMIA [None]
